FAERS Safety Report 18432961 (Version 3)
Quarter: 2020Q4

REPORT INFORMATION
  Report Type: Spontaneous
  Country: CA (occurrence: CA)
  Receive Date: 20201027
  Receipt Date: 20201129
  Transmission Date: 20210114
  Serious: No
  Sender: FDA-Public Use
  Company Number: CA-TOLMAR, INC.-20CA023431

PATIENT
  Age: 81 Year
  Sex: Male

DRUGS (2)
  1. ELIGARD [Suspect]
     Active Substance: LEUPROLIDE ACETATE
     Indication: PROSTATE CANCER
     Dosage: 45 MG, Q 6 MONTH
     Route: 058
     Dates: start: 20200424
  2. ELIGARD [Suspect]
     Active Substance: LEUPROLIDE ACETATE
     Dosage: 45 MG, Q 6 MONTH
     Route: 058
     Dates: start: 20170516

REACTIONS (3)
  - Intentional dose omission [Unknown]
  - Malaise [Not Recovered/Not Resolved]
  - Exposure to communicable disease [Unknown]

NARRATIVE: CASE EVENT DATE: 20201014
